FAERS Safety Report 25926082 (Version 2)
Quarter: 2025Q4

REPORT INFORMATION
  Report Type: Report from Study
  Country: US (occurrence: US)
  Receive Date: 20251015
  Receipt Date: 20251126
  Transmission Date: 20260117
  Serious: No
  Sender: LUNDBECK
  Company Number: US-LUNDBECK-DKLU4020438

PATIENT
  Age: 46 Year
  Sex: Female

DRUGS (1)
  1. VYEPTI [Suspect]
     Active Substance: EPTINEZUMAB-JJMR
     Indication: Migraine
     Dosage: 300 MILLIGRAM
     Route: 041
     Dates: start: 202007

REACTIONS (1)
  - Therapeutic response shortened [Unknown]

NARRATIVE: CASE EVENT DATE: 20250901
